FAERS Safety Report 18199000 (Version 1)
Quarter: 2020Q3

REPORT INFORMATION
  Report Type: Spontaneous
  Country: US (occurrence: US)
  Receive Date: 20200826
  Receipt Date: 20200826
  Transmission Date: 20201103
  Serious: Yes (Disabling, Other)
  Sender: FDA-Public Use
  Company Number: US-PURDUE-USA-2020-0162778

PATIENT
  Sex: Female

DRUGS (2)
  1. LORCET [Suspect]
     Active Substance: ACETAMINOPHEN\HYDROCODONE BITARTRATE
     Indication: PRODUCT USED FOR UNKNOWN INDICATION
     Dosage: UNK
     Route: 065
  2. MORPHINE SULFATE (SIMILAR TO NDA 19?516) [Suspect]
     Active Substance: MORPHINE SULFATE
     Indication: PRODUCT USED FOR UNKNOWN INDICATION
     Dosage: UNK
     Route: 065

REACTIONS (19)
  - Impaired work ability [Unknown]
  - Oropharyngeal pain [Unknown]
  - Dizziness [Unknown]
  - Abdominal discomfort [Unknown]
  - Headache [Unknown]
  - Dermatitis allergic [Unknown]
  - Contusion [Unknown]
  - Loss of consciousness [Unknown]
  - Asthma [Unknown]
  - Hallucination [Unknown]
  - Abdominal pain [Unknown]
  - Nephrotic syndrome [Unknown]
  - Tremor [Unknown]
  - Respiration abnormal [Unknown]
  - Protein deficiency [Unknown]
  - Head injury [Unknown]
  - Mood altered [Unknown]
  - Gait disturbance [Unknown]
  - Vomiting [Unknown]
